FAERS Safety Report 7607437-8 (Version None)
Quarter: 2011Q3

REPORT INFORMATION
  Report Type: 
  Country: None (occurrence: None)
  Receive Date: 20110713
  Receipt Date: 20110706
  Transmission Date: 20111222
  Serious: Yes (Death, Disabling)
  Sender: FDA-Public Use
  Company Number: JP-AMGEN-KDC444052

PATIENT
  Age: 62 Year
  Sex: Male
  Weight: 69 kg

DRUGS (21)
  1. PANITUMUMAB [Suspect]
     Dosage: 3.6 MG/KG, Q2WK
     Route: 041
     Dates: start: 20101109, end: 20101130
  2. IRINOTECAN HCL [Concomitant]
     Indication: COLORECTAL CANCER
     Route: 041
     Dates: start: 20100720, end: 20110118
  3. MICARDIS [Concomitant]
     Dosage: UNK UNK, UNK
     Route: 048
  4. PANITUMUMAB [Suspect]
     Indication: COLORECTAL CANCER METASTATIC
     Dosage: 6 MG/KG, Q2WK
     Route: 041
     Dates: start: 20100720, end: 20100720
  5. ACHROMYCIN [Concomitant]
     Dosage: UNK UNK, UNK
     Route: 062
  6. LEUCOVORIN CALCIUM [Concomitant]
     Indication: COLORECTAL CANCER
     Route: 041
     Dates: start: 20100720, end: 20110118
  7. FAMOTIDINE [Concomitant]
     Route: 048
  8. VOALLA [Concomitant]
     Dosage: UNK UNK, UNK
     Route: 062
  9. PYDOXAL [Concomitant]
     Indication: NEUROPATHY PERIPHERAL
     Route: 048
  10. CELESTAMINE TAB [Concomitant]
     Dosage: UNK UNK, UNK
     Route: 048
  11. LOCOID [Concomitant]
     Route: 062
  12. PANITUMUMAB [Suspect]
     Dosage: 3.6 MG/KG, Q2WK
     Route: 041
     Dates: start: 20100914, end: 20101012
  13. PANITUMUMAB [Suspect]
     Dosage: 3.6 MG/KG, Q2WK
     Route: 041
     Dates: start: 20110118, end: 20110118
  14. FLUOROURACIL [Concomitant]
     Route: 041
     Dates: start: 20100720, end: 20110118
  15. MINOCYCLINE HCL [Concomitant]
     Dosage: UNK UNK, UNK
     Route: 048
  16. MYSER [Concomitant]
     Route: 062
  17. MAGMITT [Concomitant]
     Indication: CONSTIPATION
     Dosage: UNK UNK, UNK
     Route: 048
  18. HERLAT L [Concomitant]
     Dosage: UNK UNK, UNK
     Route: 048
  19. HERLAT L [Concomitant]
     Route: 048
  20. FLUOROURACIL [Concomitant]
     Indication: COLORECTAL CANCER
     Route: 040
     Dates: start: 20100720, end: 20110118
  21. PREDNISOLONE [Concomitant]
     Route: 048

REACTIONS (5)
  - OEDEMA [None]
  - VOMITING [None]
  - COLORECTAL CANCER [None]
  - SUBCUTANEOUS ABSCESS [None]
  - DERMATITIS ACNEIFORM [None]
